FAERS Safety Report 10044372 (Version 1)
Quarter: 2014Q1

REPORT INFORMATION
  Report Type: Spontaneous
  Country: FR (occurrence: FR)
  Receive Date: 20140328
  Receipt Date: 20140328
  Transmission Date: 20141002
  Serious: Yes (Hospitalization)
  Sender: FDA-Public Use
  Company Number: FR-B.I. PHARMACEUTICALS,INC./RIDGEFIELD-2014-BI-12636FF

PATIENT
  Age: 78 Year
  Sex: Male

DRUGS (7)
  1. MECIR [Suspect]
     Indication: PRODUCT USED FOR UNKNOWN INDICATION
     Route: 048
     Dates: end: 201401
  2. PRADAXA [Suspect]
     Indication: PRODUCT USED FOR UNKNOWN INDICATION
     Route: 048
     Dates: start: 201209, end: 20140111
  3. NEURONTIN [Suspect]
     Indication: PRODUCT USED FOR UNKNOWN INDICATION
     Route: 065
     Dates: end: 201401
  4. HEMIGOXINE NATIVELLE [Suspect]
     Indication: PRODUCT USED FOR UNKNOWN INDICATION
     Route: 048
     Dates: end: 201401
  5. DEPAKOTE [Concomitant]
     Route: 065
  6. MYSOLINE [Concomitant]
     Route: 048
  7. XANAX [Concomitant]
     Route: 048

REACTIONS (2)
  - Haemorrhage [Recovered/Resolved]
  - Traumatic haematoma [Recovered/Resolved]
